FAERS Safety Report 6240470-X (Version None)
Quarter: 2009Q2

REPORT INFORMATION
  Report Type: 
  Country: None (occurrence: None)
  Receive Date: 20090623
  Receipt Date: 20090311
  Transmission Date: 20091009
  Serious: No
  Sender: FDA-Public Use
  Company Number: US-ASTRAZENECA-2009UW06396

PATIENT

DRUGS (2)
  1. PULMICORT RESPULES [Suspect]
     Indication: PULMONARY FIBROSIS
     Route: 055
     Dates: start: 20090225
  2. XOPENEX [Suspect]

REACTIONS (3)
  - DRUG ADMINISTRATION ERROR [None]
  - DRY MOUTH [None]
  - UPPER RESPIRATORY TRACT INFECTION [None]
